FAERS Safety Report 9536332 (Version 2)
Quarter: 2013Q3

REPORT INFORMATION
  Report Type: Spontaneous
  Country: US (occurrence: US)
  Receive Date: 20130919
  Receipt Date: 20130919
  Transmission Date: 20140515
  Serious: Yes (Other)
  Sender: FDA-Public Use
  Company Number: US-ROCHE-1251717

PATIENT
  Age: 60 Year
  Sex: Female

DRUGS (8)
  1. KLONOPIN [Suspect]
     Indication: PANIC DISORDER
     Route: 048
  2. KLONOPIN [Suspect]
     Indication: AGORAPHOBIA
     Dosage: 6 YEARS AGO
     Route: 065
  3. KLONOPIN [Suspect]
     Dosage: BETWEEN 1.5 MG TO 2 MG PER DAY
     Route: 065
     Dates: start: 2008
  4. KLONOPIN [Suspect]
     Route: 065
     Dates: start: 201305
  5. VALIUM [Suspect]
     Indication: PRODUCT USED FOR UNKNOWN INDICATION
     Route: 065
  6. TRAZODONE [Concomitant]
     Indication: SLEEP DISORDER
     Route: 048
  7. IMIPRAMINE [Concomitant]
  8. CLONAZEPAM [Concomitant]
     Route: 065
     Dates: start: 2008

REACTIONS (16)
  - Multiple sclerosis [Unknown]
  - Convulsion [Unknown]
  - Vertigo [Not Recovered/Not Resolved]
  - Agitation [Unknown]
  - Nervousness [Unknown]
  - Dizziness [Unknown]
  - Balance disorder [Unknown]
  - Tremor [Unknown]
  - Coordination abnormal [Unknown]
  - Skin burning sensation [Unknown]
  - Weight decreased [Unknown]
  - Feeling abnormal [Unknown]
  - Trance [Not Recovered/Not Resolved]
  - Derealisation [Not Recovered/Not Resolved]
  - Hypersomnia [Unknown]
  - Drug ineffective [Unknown]
